FAERS Safety Report 9432771 (Version 2)
Quarter: 2013Q3

REPORT INFORMATION
  Report Type: Spontaneous
  Country: IT (occurrence: IT)
  Receive Date: 20130731
  Receipt Date: 20130925
  Transmission Date: 20140515
  Serious: Yes (Hospitalization)
  Sender: FDA-Public Use
  Company Number: IT-TEVA-422277ISR

PATIENT
  Age: 67 Year
  Sex: Female

DRUGS (9)
  1. METFORMIN [Suspect]
     Indication: DIABETES MELLITUS
     Dosage: 3 DOSAGE FORMS DAILY;
     Route: 048
     Dates: start: 20130527, end: 20130601
  2. NOVORAPID FLEXPEN 110U/ML [Suspect]
     Indication: DIABETES MELLITUS
     Dosage: 24 IU (INTERNATIONAL UNIT) DAILY;
     Route: 058
  3. LANTUS SOLOSTAR [Concomitant]
     Indication: DIABETES MELLITUS
  4. SERETIDE DISKUS 50/500MCG [Concomitant]
     Indication: CHRONIC OBSTRUCTIVE PULMONARY DISEASE
  5. SPIRIVA 18 MCG [Concomitant]
     Indication: CHRONIC OBSTRUCTIVE PULMONARY DISEASE
  6. LYRICA 75 MG [Concomitant]
  7. XENAZINA 25 MG [Concomitant]
     Indication: BALLISMUS
  8. RAMIPRIL [Concomitant]
  9. LETROZOLO [Concomitant]

REACTIONS (2)
  - Shock hypoglycaemic [Recovered/Resolved]
  - Intentional drug misuse [Recovered/Resolved]
